FAERS Safety Report 7911455-X (Version None)
Quarter: 2011Q4

REPORT INFORMATION
  Report Type: 
  Country: None (occurrence: None)
  Receive Date: 20111109
  Receipt Date: 20110823
  Transmission Date: 20120403
  Serious: Yes (Other)
  Sender: FDA-Public Use
  Company Number: 1000023104

PATIENT
  Age: 57 Year
  Sex: Male

DRUGS (12)
  1. ACCUPRIL [Concomitant]
  2. PENICILLIN (PENICILLIN) [Concomitant]
  3. LIPITOR (ATORVASTATIN CALCIUIM) [Concomitant]
  4. IBUPROFEN [Concomitant]
  5. CENTRUM SILVER MULTIVITAMIN (CENTRUM SILVER MULTIVITAMIN) [Concomitant]
  6. GLYBURIDE [Concomitant]
  7. CLONIDINE [Concomitant]
  8. GLUCOPHAGE [Concomitant]
  9. ASPIRIN [Concomitant]
  10. TIAZAC [Suspect]
     Indication: HYPERTENSION
     Dosage: 240 MG (240 MG, 1 IN 1 D)
     Dates: start: 20110101
  11. FUROSEMIDE [Concomitant]
  12. CARDURA [Concomitant]

REACTIONS (2)
  - DRUG EFFECT DECREASED [None]
  - BLOOD PRESSURE INCREASED [None]
